FAERS Safety Report 6011432-2 (Version None)
Quarter: 2008Q4

REPORT INFORMATION
  Report Type: 
  Country: None (occurrence: None)
  Receive Date: 20081218
  Receipt Date: 20020426
  Transmission Date: 20090506
  Serious: Yes (Death, Other)
  Sender: FDA-Public Use
  Company Number: FR-ROCHE-312360

PATIENT
  Sex: Female
  Weight: 67 kg

DRUGS (10)
  1. DACLIZUMAB [Suspect]
     Route: 042
     Dates: start: 20020121, end: 20020204
  2. DACLIZUMAB [Suspect]
     Route: 042
     Dates: start: 20020304, end: 20020304
  3. MYCOPHENOLATE MOFETIL [Suspect]
     Route: 048
     Dates: start: 20020121, end: 20020419
  4. NEORAL [Suspect]
     Route: 048
     Dates: start: 20020312, end: 20020419
  5. STEROID NOS [Suspect]
     Route: 048
     Dates: start: 20020306
  6. STEROID NOS [Suspect]
     Route: 048
     Dates: start: 20020416, end: 20020419
  7. MOPRAL [Concomitant]
     Indication: PROPHYLAXIS
     Route: 048
     Dates: start: 20020121, end: 20020419
  8. BACTRIM [Concomitant]
     Indication: PROPHYLAXIS
     Route: 048
     Dates: start: 20020124, end: 20020419
  9. DEPAKENE [Concomitant]
     Route: 048
     Dates: start: 20011101, end: 20020419
  10. DETENSIEL [Concomitant]
     Indication: HYPERTENSION
     Route: 048
     Dates: start: 20020126, end: 20020419

REACTIONS (2)
  - CYTOMEGALOVIRUS INFECTION [None]
  - DEATH [None]
